FAERS Safety Report 18141470 (Version 2)
Quarter: 2021Q2

REPORT INFORMATION
  Report Type: Report from Study
  Country: FR (occurrence: FR)
  Receive Date: 20200812
  Receipt Date: 20210604
  Transmission Date: 20210717
  Serious: Yes (Death, Hospitalization, Other)
  Sender: FDA-Public Use
  Company Number: FR-WORLDWIDE CLINICAL TRIALS-2020-FR-000118

PATIENT
  Age: 84 Year
  Sex: Female
  Weight: 66.6 kg

DRUGS (23)
  1. DCC?2618 [Suspect]
     Active Substance: RIPRETINIB
     Dosage: 150 MILLIGRAM, QD
     Route: 048
     Dates: start: 20191024, end: 20191113
  2. SPASFON [Concomitant]
     Indication: ABDOMINAL PAIN
     Dosage: 4 TABLET, PRN
     Route: 048
     Dates: start: 202003, end: 20200501
  3. MIANSERINE [Concomitant]
     Active Substance: MIANSERIN HYDROCHLORIDE
     Dosage: 10 MG, BID
     Route: 048
     Dates: start: 20191101
  4. SALBUTAMOL [Concomitant]
     Active Substance: ALBUTEROL
     Indication: CHRONIC OBSTRUCTIVE PULMONARY DISEASE
     Dosage: 3 PUFF, TID
     Route: 048
     Dates: start: 20191023
  5. DAFALGAN [Concomitant]
     Active Substance: ACETAMINOPHEN
     Indication: ABDOMINAL PAIN
     Dosage: 6 CAPSULE, PRN
     Route: 048
     Dates: start: 20191105
  6. DCC?2618 [Suspect]
     Active Substance: RIPRETINIB
     Dosage: 150 MILLIGRAM, QD
     Route: 048
     Dates: start: 20200107, end: 20200212
  7. DCC?2618 [Suspect]
     Active Substance: RIPRETINIB
     Dosage: 100 MILLIGRAM, QD
     Route: 048
     Dates: start: 20200311, end: 20200506
  8. PAROXETINE. [Concomitant]
     Active Substance: PAROXETINE
     Indication: PRODUCT USED FOR UNKNOWN INDICATION
     Dosage: UNK
     Dates: start: 202005
  9. MAGNE B6 [Concomitant]
     Active Substance: MAGNESIUM\PYRIDOXINE
     Indication: MAGNESIUM DEFICIENCY
     Dosage: 2 PACK, QD
     Route: 048
     Dates: start: 202003, end: 20200507
  10. TIORFAN [Concomitant]
     Active Substance: RACECADOTRIL
     Indication: DIARRHOEA
     Dosage: 3 TABLET, PRN
     Route: 048
     Dates: start: 202003
  11. DCC?2618 [Suspect]
     Active Substance: RIPRETINIB
     Dosage: 100 MILLIGRAM, QD
     Route: 048
     Dates: start: 20191114, end: 20200106
  12. MIANSERINE [Concomitant]
     Active Substance: MIANSERIN HYDROCHLORIDE
     Indication: DEPRESSION
     Dosage: 10 MG, BID
     Route: 048
     Dates: start: 20191101
  13. IMODIUM [Concomitant]
     Active Substance: LOPERAMIDE HYDROCHLORIDE
     Indication: DIARRHOEA
     Dosage: 3 TABLETS, PRN
     Route: 048
     Dates: start: 202003
  14. LYRICA [Concomitant]
     Active Substance: PREGABALIN
     Indication: GOUT
     Dosage: UNK, OTHER
     Route: 048
     Dates: start: 202003, end: 20200501
  15. MAGNESIUM [Concomitant]
     Active Substance: MAGNESIUM
     Indication: MAGNESIUM DEFICIENCY
     Dosage: UNK
     Route: 048
  16. SYMBICORT [Concomitant]
     Active Substance: BUDESONIDE\FORMOTEROL FUMARATE DIHYDRATE
     Indication: CHRONIC OBSTRUCTIVE PULMONARY DISEASE
     Dosage: 1 PUFF, QD
     Route: 048
  17. COLCHICINE. [Concomitant]
     Active Substance: COLCHICINE
     Indication: GOUT
     Dosage: UNK, OTHER
     Dates: start: 202003, end: 202004
  18. DCC?2618 [Suspect]
     Active Substance: RIPRETINIB
     Indication: GASTROINTESTINAL STROMAL TUMOUR
     Dosage: 150 MILLIGRAM, QD
     Route: 048
     Dates: start: 20191009, end: 20191012
  19. ALLOPURINOL. [Concomitant]
     Active Substance: ALLOPURINOL
     Indication: GOUT
     Dosage: 1 TAB (200 MG), QD
     Route: 048
     Dates: start: 202003, end: 20200507
  20. SMECTA [Concomitant]
     Active Substance: MONTMORILLONITE
     Indication: DIARRHOEA
     Dosage: 1 BAG, PRN
     Route: 048
     Dates: start: 20191023
  21. SPASFON [Concomitant]
     Dosage: 4 TABS, PRN
     Route: 048
     Dates: start: 202003, end: 20200501
  22. AMLODIPINE [Concomitant]
     Active Substance: AMLODIPINE BESYLATE
     Indication: HYPERTENSION
     Dosage: 1 CAPSULE, QD
     Route: 048
     Dates: start: 20191030, end: 20200501
  23. INNOHEP [Concomitant]
     Active Substance: TINZAPARIN SODIUM
     Indication: THROMBOSIS
     Dosage: 1 INJECTION, QD
     Route: 058
     Dates: start: 202003, end: 20200514

REACTIONS (2)
  - Acute kidney injury [Recovered/Resolved]
  - Chronic obstructive pulmonary disease [Recovered/Resolved]

NARRATIVE: CASE EVENT DATE: 20200515
